FAERS Safety Report 11159639 (Version 1)
Quarter: 2015Q2

REPORT INFORMATION
  Report Type: Spontaneous
  Country: JP (occurrence: JP)
  Receive Date: 20150603
  Receipt Date: 20150603
  Transmission Date: 20150821
  Serious: Yes (Other)
  Sender: FDA-Public Use
  Company Number: JP-PFIZER INC-2015183320

PATIENT
  Age: 7 Decade
  Sex: Female

DRUGS (1)
  1. LYRICA [Suspect]
     Active Substance: PREGABALIN
     Indication: SPINAL COLUMN STENOSIS
     Dosage: 25 MG, DAILY
     Route: 048

REACTIONS (4)
  - Insomnia [Unknown]
  - Anaphylactic reaction [Recovering/Resolving]
  - Hypoglycaemia [Unknown]
  - Hyperhidrosis [Unknown]
